FAERS Safety Report 6251876-7 (Version None)
Quarter: 2009Q2

REPORT INFORMATION
  Report Type: 
  Country: None (occurrence: None)
  Receive Date: 20090630
  Receipt Date: 20090618
  Transmission Date: 20091009
  Serious: Yes (Death, Hospitalization)
  Sender: FDA-Public Use
  Company Number: FR-PFIZER INC-2009199619

PATIENT
  Age: 60 Year

DRUGS (17)
  1. SUTENT [Suspect]
     Indication: THYROID CANCER
     Dosage: 50 MG, 1X/DAY
     Dates: start: 20090311
  2. NEXIUM [Concomitant]
     Indication: PROPHYLAXIS
     Dosage: 20 UNK, 1X/DAY
     Dates: start: 20081201
  3. TRIMEBUTINE MALEATE [Concomitant]
     Dosage: 2 DF, 2X/DAY
     Dates: start: 20090311
  4. ALPRAZOLAM [Concomitant]
     Indication: ANXIETY
     Dosage: 1.5 G, 3X/DAY
     Dates: start: 20080101
  5. SOLUPRED [Concomitant]
     Indication: DYSPNOEA
     Dosage: 40 UNK, 1X/DAY
     Dates: start: 20081201
  6. LEVOTHYROX [Concomitant]
     Indication: HYPOTHYROIDISM
     Dosage: 175 UG, 1X/DAY
     Dates: start: 19960101
  7. TENORMIN [Concomitant]
     Indication: TACHYCARDIA
     Dosage: 75 MG, 2X/DAY
     Dates: start: 19970101
  8. CONTRAMAL [Concomitant]
     Dosage: 150 MG, 3X/DAY
     Dates: start: 20090301
  9. DOLIPRANE [Concomitant]
     Dosage: 2-3 G, 3X/DAY
     Dates: start: 20080901
  10. SPASFON-LYOC [Concomitant]
     Dosage: 61 UNK, 3X/DAY
     Dates: start: 20090311
  11. DOMPERIDONE [Concomitant]
     Dosage: 3 DF, 3X/DAY
     Dates: start: 20090311
  12. PARACETAMOL [Concomitant]
  13. PRIMPERAN [Concomitant]
  14. SUCRALFATE [Concomitant]
  15. OSSOPAN [Concomitant]
  16. HYDROCORTISONE [Concomitant]
  17. SANDOSTATIN [Concomitant]

REACTIONS (2)
  - DISEASE PROGRESSION [None]
  - THYROID CANCER [None]
